FAERS Safety Report 18040513 (Version 1)
Quarter: 2020Q3

REPORT INFORMATION
  Report Type: Spontaneous
  Country: RO (occurrence: RO)
  Receive Date: 20200717
  Receipt Date: 20200717
  Transmission Date: 20201103
  Serious: Yes (Other)
  Sender: FDA-Public Use
  Company Number: RO-009507513-2006ROM000181

PATIENT
  Sex: Female

DRUGS (6)
  1. XYZAL [Concomitant]
     Active Substance: LEVOCETIRIZINE DIHYDROCHLORIDE
     Dosage: UNK
  2. DYMISTA [Concomitant]
     Active Substance: AZELASTINE HYDROCHLORIDE\FLUTICASONE PROPIONATE
     Dosage: UNK
  3. NASONEX [Suspect]
     Active Substance: MOMETASONE FUROATE
     Dosage: UNK
  4. AERIUS (DESLORATADINE) [Suspect]
     Active Substance: DESLORATADINE
     Dosage: IN THE RAGWEED SEASON TOOK ONE PILL IN THE MORNING AND ONE PILL IN THE NIGHT
     Route: 048
  5. AERIUS (DESLORATADINE) [Suspect]
     Active Substance: DESLORATADINE
     Dosage: UNK (FORMULATION: SIMPLE)
     Route: 048
  6. AERIUS (DESLORATADINE) [Suspect]
     Active Substance: DESLORATADINE
     Dosage: A CAPSULE EVERY NIGHT
     Route: 048

REACTIONS (15)
  - Swelling [Unknown]
  - Pharyngeal inflammation [Unknown]
  - Erythema [Unknown]
  - Influenza like illness [Unknown]
  - Weight increased [Unknown]
  - Nasal congestion [Unknown]
  - Asphyxia [Unknown]
  - Therapeutic product effect incomplete [Unknown]
  - Hypersensitivity [Unknown]
  - Product availability issue [Unknown]
  - Quality of life decreased [Unknown]
  - Rhinitis [Unknown]
  - Suffocation feeling [Unknown]
  - Lacrimation increased [Unknown]
  - Dyspnoea [Unknown]
